FAERS Safety Report 21769249 (Version 3)
Quarter: 2023Q1

REPORT INFORMATION
  Report Type: Spontaneous
  Country: AT (occurrence: AT)
  Receive Date: 20221223
  Receipt Date: 20230119
  Transmission Date: 20230417
  Serious: Yes (Other)
  Sender: FDA-Public Use
  Company Number: AT-BAXTER-2022BAX025959

PATIENT
  Age: 70 Year
  Sex: Male

DRUGS (23)
  1. DARZALEX [Suspect]
     Active Substance: DARATUMUMAB
     Indication: Bone lesion
     Dosage: 3 RD LINE
     Route: 065
     Dates: start: 201901, end: 202107
  2. DARZALEX [Suspect]
     Active Substance: DARATUMUMAB
     Indication: Plasma cell myeloma
  3. VELCADE [Suspect]
     Active Substance: BORTEZOMIB
     Indication: Bone lesion
     Dosage: 1ST LINE VCD
     Route: 065
     Dates: start: 201505, end: 201507
  4. VELCADE [Suspect]
     Active Substance: BORTEZOMIB
     Indication: Plasma cell myeloma
  5. ELOTUZUMAB [Suspect]
     Active Substance: ELOTUZUMAB
     Indication: Plasma cell myeloma
     Dosage: UNK
     Route: 065
     Dates: start: 202108, end: 202209
  6. ELOTUZUMAB [Suspect]
     Active Substance: ELOTUZUMAB
     Indication: Bone lesion
  7. POMALIDOMIDE [Suspect]
     Active Substance: POMALIDOMIDE
     Indication: Plasma cell myeloma
     Dosage: UNK
     Route: 065
     Dates: start: 202108, end: 202209
  8. POMALIDOMIDE [Suspect]
     Active Substance: POMALIDOMIDE
     Indication: Bone lesion
  9. BELANTAMAB MAFODOTIN [Suspect]
     Active Substance: BELANTAMAB MAFODOTIN
     Indication: Bone lesion
     Dosage: UNK
     Route: 065
     Dates: start: 202209, end: 202211
  10. BELANTAMAB MAFODOTIN [Suspect]
     Active Substance: BELANTAMAB MAFODOTIN
     Indication: Plasma cell myeloma
  11. CYCLOPHOSPHAMIDE [Suspect]
     Active Substance: CYCLOPHOSPHAMIDE
     Indication: Plasma cell myeloma
     Dosage: UNK
     Route: 065
     Dates: start: 201508
  12. CYCLOPHOSPHAMIDE [Suspect]
     Active Substance: CYCLOPHOSPHAMIDE
     Indication: Haematopoietic stem cell mobilisation
     Dosage: 1ST LINE VCD
     Route: 065
     Dates: start: 201505, end: 201507
  13. CYCLOPHOSPHAMIDE [Suspect]
     Active Substance: CYCLOPHOSPHAMIDE
     Indication: Bone lesion
     Dosage: 4 TH LINE
     Route: 065
     Dates: start: 202107, end: 202108
  14. MELPHALAN [Suspect]
     Active Substance: MELPHALAN
     Indication: Chemotherapy
     Dosage: UNK
     Route: 065
     Dates: start: 201509
  15. REVLIMID [Suspect]
     Active Substance: LENALIDOMIDE
     Indication: Bone lesion
     Dosage: 3RD LINE
     Route: 065
     Dates: start: 201901, end: 202107
  16. REVLIMID [Suspect]
     Active Substance: LENALIDOMIDE
     Indication: Plasma cell myeloma
     Dosage: 2 ND LINE
     Route: 065
     Dates: start: 201706, end: 201901
  17. IXAZOMIB [Suspect]
     Active Substance: IXAZOMIB
     Indication: Plasma cell myeloma
     Dosage: 4 TH LINE
     Route: 065
     Dates: start: 202107, end: 202108
  18. IXAZOMIB [Suspect]
     Active Substance: IXAZOMIB
     Indication: Bone lesion
  19. DEXAMETHASONE [Suspect]
     Active Substance: DEXAMETHASONE
     Indication: Plasma cell myeloma
     Dosage: 2ND LINE
     Route: 065
     Dates: start: 201706, end: 201901
  20. DEXAMETHASONE [Suspect]
     Active Substance: DEXAMETHASONE
     Indication: Bone lesion
     Dosage: 1ST LINE VCD
     Route: 065
     Dates: start: 201505, end: 201507
  21. DEXAMETHASONE [Suspect]
     Active Substance: DEXAMETHASONE
     Dosage: 3RD LINE
     Route: 065
     Dates: start: 201901, end: 202107
  22. DEXAMETHASONE [Suspect]
     Active Substance: DEXAMETHASONE
     Dosage: UNK
     Route: 065
     Dates: start: 202108, end: 202209
  23. DEXAMETHASONE [Suspect]
     Active Substance: DEXAMETHASONE
     Dosage: 4 TH LINE
     Route: 065
     Dates: start: 202107, end: 202108

REACTIONS (5)
  - Neoplasm progression [Unknown]
  - Therapy partial responder [Unknown]
  - Keratopathy [Unknown]
  - Toxicity to various agents [Unknown]
  - Therapy partial responder [Unknown]

NARRATIVE: CASE EVENT DATE: 20170601
